FAERS Safety Report 8791107 (Version 2)
Quarter: 2013Q1

REPORT INFORMATION
  Report Type: Spontaneous
  Country: US (occurrence: None)
  Receive Date: 20120907
  Receipt Date: 20121116
  Transmission Date: 20140127
  Serious: Yes (Hospitalization)
  Sender: FDA-Public Use
  Company Number: JPI-P-024898

PATIENT
  Age: 60 Year
  Sex: Female
  Weight: 50.8 kg

DRUGS (25)
  1. XYREM (500 MILLIGRAM/MILLILITERS, SOLUTION) (SODIUM OXYBATE) [Suspect]
     Indication: FIBROMYALGIA
     Dosage: (2.25 GM,2 IN 1 D)
     Route: 048
     Dates: start: 20040621
  2. AMLODIPINE [Concomitant]
  3. BUPROPION [Concomitant]
  4. CALCIUM CITRATE AND VITAMIN D [Concomitant]
  5. CLONAZEPAM [Concomitant]
  6. FENTANYL [Concomitant]
  7. HYDROMORPHONE [Concomitant]
  8. ESCITALOPRAM OXALATE [Concomitant]
  9. POLYETHYLENE GLYCOL [Concomitant]
  10. OMEPRAZOLE [Concomitant]
  11. OXYBUTYNIN [Concomitant]
  12. MODAFINIL [Concomitant]
  13. CYCLOSPORINE [Concomitant]
  14. ESTRADIOL [Concomitant]
  15. VITAMIN B-12 [Concomitant]
  16. VITAMIN D [Concomitant]
  17. VITAMIN E [Concomitant]
  18. MULTIVITAMIN [Concomitant]
  19. ZOLPIDEM TARTRATE [Concomitant]
  20. SUMATRIPTAN SUCCINATE [Concomitant]
  21. CALCIUM CARBONATE [Concomitant]
  22. SIMETHICONE [Concomitant]
  23. IBUPROFEN [Concomitant]
  24. DANTROLENE [Concomitant]
  25. OMEGA 3 [Concomitant]

REACTIONS (5)
  - Basal cell carcinoma [None]
  - Malignant melanoma [None]
  - Skin graft [None]
  - Cyst [None]
  - Scar [None]
